FAERS Safety Report 4483876-1 (Version None)
Quarter: 2004Q4

REPORT INFORMATION
  Report Type: 
  Country: None (occurrence: None)
  Receive Date: 20041022
  Receipt Date: 20041022
  Transmission Date: 20050328
  Serious: Yes (Other)
  Sender: FDA-Public Use
  Company Number: None

PATIENT
  Age: 54 Year
  Sex: Female
  Weight: 124.7392 kg

DRUGS (6)
  1. PROZAC [Suspect]
     Indication: MAJOR DEPRESSION
     Dosage: 80 MG DAILY BY MOUTH
     Route: 048
  2. PROCARDIA [Concomitant]
  3. LIPITOR [Concomitant]
  4. RANITIDINE [Concomitant]
  5. CELEBREX [Concomitant]
  6. TRAZODONE HCL [Concomitant]

REACTIONS (4)
  - DRUG INEFFECTIVE [None]
  - HEADACHE [None]
  - PHARMACEUTICAL PRODUCT COMPLAINT [None]
  - VOMITING [None]
